FAERS Safety Report 8249762 (Version 2)
Quarter: 2013Q1

REPORT INFORMATION
  Report Type: Report from Study
  Country: AT (occurrence: AT)
  Receive Date: 20111117
  Receipt Date: 20130307
  Transmission Date: 20140127
  Serious: Yes (Other)
  Sender: FDA-Public Use
  Company Number: AT-ROCHE-1013136

PATIENT
  Sex: Female

DRUGS (4)
  1. BEVACIZUMAB [Suspect]
     Indication: RHABDOMYOSARCOMA
     Route: 042
  2. BEVACIZUMAB [Suspect]
     Indication: METASTASES TO SOFT TISSUE
  3. CYCLOPHOSPHAMID [Concomitant]
  4. VINBLASTINE [Concomitant]

REACTIONS (1)
  - Proteinuria [Unknown]
